FAERS Safety Report 13921224 (Version 4)
Quarter: 2019Q4

REPORT INFORMATION
  Report Type: Other
  Country: FR (occurrence: FR)
  Receive Date: 20170830
  Receipt Date: 20191128
  Transmission Date: 20200122
  Serious: Yes (Hospitalization, Other)
  Sender: FDA-Public Use
  Company Number: FR-ASTELLAS-2017US034105

PATIENT
  Age: 10 Year
  Sex: Female
  Weight: 26 kg

DRUGS (11)
  1. AMPHOTERICIN B, LIPOSOME [Suspect]
     Active Substance: AMPHOTERICIN B
     Indication: PYREXIA
     Route: 041
     Dates: start: 20170726, end: 20170804
  2. FERROSTRANE [Suspect]
     Active Substance: SODIUM FEREDETATE
     Indication: MICROCYTIC ANAEMIA
     Dosage: 0.5 DF, ONCE DAILY
     Route: 048
     Dates: start: 20170720, end: 20170807
  3. PRIVIGEN [Suspect]
     Active Substance: HUMAN IMMUNOGLOBULIN G
     Indication: IMMUNOSUPPRESSION
     Route: 065
     Dates: start: 20170722, end: 20170724
  4. GENTAMICIN. [Suspect]
     Active Substance: GENTAMICIN
     Indication: PYREXIA
     Route: 041
     Dates: start: 20170718, end: 20170804
  5. NUROFENPRO [Suspect]
     Active Substance: IBUPROFEN
     Indication: PYREXIA
     Route: 048
     Dates: start: 20170731, end: 20170804
  6. KARDEGIC [Concomitant]
     Active Substance: ASPIRIN DL-LYSINE
     Indication: PRODUCT USED FOR UNKNOWN INDICATION
     Dosage: UNK UNK, UNKNOWN FREQ.
     Route: 065
     Dates: start: 20170708
  7. BACTRIM [Suspect]
     Active Substance: SULFAMETHOXAZOLE\TRIMETHOPRIM
     Indication: PROPHYLAXIS
     Dosage: 2 DOSAGE FORM, TIW (0.8571DF)
     Route: 048
     Dates: start: 20170729, end: 20170807
  8. ZOPHREN [Suspect]
     Active Substance: ONDANSETRON
     Indication: VOMITING
     Dosage: 5 DF, TOTAL PRN
     Route: 048
     Dates: start: 20170722, end: 20170806
  9. PARACETAMOL [Concomitant]
     Active Substance: ACETAMINOPHEN
     Indication: PRODUCT USED FOR UNKNOWN INDICATION
     Dosage: UNK UNK, UNKNOWN FREQ.
     Route: 065
     Dates: start: 20170717
  10. VANCOMYCIN MYLAN [Suspect]
     Active Substance: VANCOMYCIN
     Indication: PYREXIA
     Route: 041
     Dates: start: 20170718, end: 20170804
  11. LASILIX [Suspect]
     Active Substance: FUROSEMIDE
     Indication: PROPHYLAXIS
     Route: 048
     Dates: start: 20170717, end: 20170804

REACTIONS (6)
  - Rash [Recovered/Resolved]
  - Antibiotic level above therapeutic [Unknown]
  - Lymphadenopathy [Recovered/Resolved]
  - Pyrexia [Recovered/Resolved]
  - Renal failure [Unknown]
  - Pancytopenia [Recovered/Resolved]

NARRATIVE: CASE EVENT DATE: 20170724
